FAERS Safety Report 11251430 (Version 2)
Quarter: 2015Q3

REPORT INFORMATION
  Report Type: Spontaneous
  Country: US (occurrence: US)
  Receive Date: 20150708
  Receipt Date: 20150803
  Transmission Date: 20151125
  Serious: Yes (Other)
  Sender: FDA-Public Use
  Company Number: US-ELI_LILLY_AND_COMPANY-US201112005134

PATIENT
  Sex: Male
  Weight: 83 kg

DRUGS (11)
  1. SEROQUEL [Concomitant]
     Active Substance: QUETIAPINE FUMARATE
  2. VALIUM [Concomitant]
     Active Substance: DIAZEPAM
  3. AMBIEN [Concomitant]
     Active Substance: ZOLPIDEM TARTRATE
  4. ZYPREXA [Suspect]
     Active Substance: OLANZAPINE
     Indication: SCHIZOPHRENIA
     Dosage: 5 MG, AT BEDTIME
     Dates: start: 20100203, end: 20120106
  5. ZYPREXA RELPREVV [Suspect]
     Active Substance: OLANZAPINE PAMOATE
     Indication: SCHIZOPHRENIA
     Dosage: 405 MG, MONTHLY (1/M)
     Dates: start: 20101210
  6. MIRTAZAPINE. [Concomitant]
     Active Substance: MIRTAZAPINE
  7. PRAZOSIN [Concomitant]
     Active Substance: PRAZOSIN
  8. NORCO [Concomitant]
     Active Substance: ACETAMINOPHEN\HYDROCODONE BITARTRATE
  9. TRAMADOL. [Concomitant]
     Active Substance: TRAMADOL
  10. FLEXERIL [Concomitant]
     Active Substance: CYCLOBENZAPRINE HYDROCHLORIDE
  11. THORAZINE [Concomitant]
     Active Substance: CHLORPROMAZINE
     Dosage: UNK

REACTIONS (5)
  - Blood triglycerides increased [Recovering/Resolving]
  - Abdominal pain [Recovering/Resolving]
  - Weight increased [Recovering/Resolving]
  - Blood glucose increased [Recovering/Resolving]
  - Blood cholesterol increased [Recovering/Resolving]

NARRATIVE: CASE EVENT DATE: 20110619
